FAERS Safety Report 9743017 (Version 1)
Quarter: 2013Q4

REPORT INFORMATION
  Report Type: Spontaneous
  Country: US (occurrence: US)
  Receive Date: 20131210
  Receipt Date: 20131210
  Transmission Date: 20140711
  Serious: No
  Sender: FDA-Public Use
  Company Number: US-TEVA-388109USA

PATIENT
  Sex: Male

DRUGS (1)
  1. BUDESONIDE [Suspect]
     Indication: MALAISE
     Dates: start: 2013

REACTIONS (5)
  - Hypersensitivity [Recovered/Resolved]
  - Angiopathy [Recovered/Resolved]
  - Rash macular [Recovered/Resolved]
  - Dyspnoea [Recovered/Resolved]
  - Erythema [Recovered/Resolved]
